FAERS Safety Report 10235185 (Version 1)
Quarter: 2014Q2

REPORT INFORMATION
  Report Type: Spontaneous
  Country: US (occurrence: US)
  Receive Date: 20140613
  Receipt Date: 20140613
  Transmission Date: 20141212
  Serious: No
  Sender: FDA-Public Use
  Company Number: US-009507513-1406USA006344

PATIENT
  Sex: 0

DRUGS (1)
  1. ASMANEX HFA [Suspect]
     Indication: PRODUCT USED FOR UNKNOWN INDICATION
     Dosage: 1 PUFF, BID
     Route: 055
     Dates: start: 20140606

REACTIONS (2)
  - Drug dose omission [Unknown]
  - Product quality issue [Unknown]
